FAERS Safety Report 7746744-5 (Version None)
Quarter: 2011Q3

REPORT INFORMATION
  Report Type: 
  Country: None (occurrence: None)
  Receive Date: 20110913
  Receipt Date: 20110908
  Transmission Date: 20111222
  Serious: Yes (Other)
  Sender: FDA-Public Use
  Company Number: CA-NAPPMUNDI-CAN-2009-0000983

PATIENT
  Sex: Male

DRUGS (5)
  1. PERCOCET [Suspect]
     Indication: PRODUCT USED FOR UNKNOWN INDICATION
  2. MARIJUANA [Suspect]
     Indication: PRODUCT USED FOR UNKNOWN INDICATION
     Route: 055
  3. OXYCONTIN [Suspect]
     Indication: PRODUCT USED FOR UNKNOWN INDICATION
  4. COCAINE [Suspect]
     Indication: PRODUCT USED FOR UNKNOWN INDICATION
  5. ALCOHOL [Suspect]
     Indication: PRODUCT USED FOR UNKNOWN INDICATION

REACTIONS (12)
  - OVERDOSE [None]
  - DRUG WITHDRAWAL SYNDROME [None]
  - CYANOSIS [None]
  - PAIN [None]
  - WEIGHT INCREASED [None]
  - PALLOR [None]
  - HYPOAESTHESIA [None]
  - SUBSTANCE ABUSE [None]
  - GENERAL PHYSICAL HEALTH DETERIORATION [None]
  - SOCIAL AVOIDANT BEHAVIOUR [None]
  - DRUG DEPENDENCE [None]
  - EUPHORIC MOOD [None]
